FAERS Safety Report 6184417-3 (Version None)
Quarter: 2009Q2

REPORT INFORMATION
  Report Type: 
  Country: None (occurrence: None)
  Receive Date: 20090508
  Receipt Date: 20090429
  Transmission Date: 20091009
  Serious: Yes (Other)
  Sender: FDA-Public Use
  Company Number: B0573101A

PATIENT
  Age: 43 Year
  Sex: Female
  Weight: 71 kg

DRUGS (1)
  1. ONDANSETRON [Suspect]
     Route: 042
     Dates: start: 20090210, end: 20090210

REACTIONS (1)
  - INJECTION SITE VESICLES [None]
